FAERS Safety Report 4470585-8 (Version None)
Quarter: 2004Q4

REPORT INFORMATION
  Report Type: 
  Country: None (occurrence: None)
  Receive Date: 20041006
  Receipt Date: 20041006
  Transmission Date: 20050328
  Serious: Yes (Hospitalization)
  Sender: FDA-Public Use
  Company Number: None

PATIENT
  Age: 71 Year
  Sex: Male
  Weight: 70.3 kg

DRUGS (3)
  1. VANCOMYCIN [Suspect]
     Dosage: 1 DOSE, IN OR, INTRAVEN
     Route: 042
     Dates: start: 20040503, end: 20040503
  2. TRAZODONE HCL (DESYREL) TAB [Concomitant]
  3. ACETAMINOPHEN TAB [Concomitant]

REACTIONS (2)
  - LACRIMATION INCREASED [None]
  - RASH PRURITIC [None]
